FAERS Safety Report 20374532 (Version 2)
Quarter: 2022Q1

REPORT INFORMATION
  Report Type: Spontaneous
  Country: US (occurrence: US)
  Receive Date: 20220125
  Receipt Date: 20220202
  Transmission Date: 20220423
  Serious: No
  Sender: FDA-Public Use
  Company Number: US-GW PHARMA-202201USGW00268

PATIENT
  Sex: Male
  Weight: 87.8 kg

DRUGS (2)
  1. EPIDIOLEX [Suspect]
     Active Substance: CANNABIDIOL
     Indication: Lennox-Gastaut syndrome
     Dosage: 15.95 MG/KG/DAY, 1400 MILLIGRAM, QD
     Route: 048
     Dates: start: 202011
  2. OLANZAPINE [Suspect]
     Active Substance: OLANZAPINE
     Indication: Mental disorder
     Dosage: UNK
     Route: 065

REACTIONS (1)
  - Weight fluctuation [Unknown]
